FAERS Safety Report 5920312-X (Version None)
Quarter: 2008Q4

REPORT INFORMATION
  Report Type: 
  Country: None (occurrence: None)
  Receive Date: 20081016
  Receipt Date: 20081007
  Transmission Date: 20090506
  Serious: Yes (Other)
  Sender: FDA-Public Use
  Company Number: PHHY2008GB22701

PATIENT
  Sex: Male

DRUGS (10)
  1. CLOZARIL [Suspect]
     Indication: SCHIZOPHRENIA
     Dosage: UNK
     Route: 048
     Dates: start: 20040101
  2. FERROUS SULFATE TAB [Suspect]
     Indication: ANAEMIA
     Dosage: UNK
     Dates: start: 20080601, end: 20080701
  3. VALPROATE SODIUM [Concomitant]
     Indication: EPILEPSY
     Dosage: 400 MG, BID
     Route: 048
  4. AMISULPRIDE [Concomitant]
     Indication: SCHIZOPHRENIA
     Dosage: 300 MG
     Route: 048
  5. LACTULOSE [Concomitant]
     Indication: CONSTIPATION
     Dosage: 15 ML, BID
     Route: 048
     Dates: end: 20080721
  6. BECLOMETHASONE DIPROPIONATE [Concomitant]
     Indication: ASTHMA
     Dosage: 400 MCG
  7. IPRATROPIUM BROMIDE [Concomitant]
     Indication: SALIVARY HYPERSECRETION
     Dosage: BID
     Route: 045
     Dates: end: 20080718
  8. FYBOGEL [Concomitant]
     Dosage: BID
     Route: 048
  9. LANSOPRAZOLE [Concomitant]
     Dosage: 30 MG, BID
     Route: 048
     Dates: start: 20080206, end: 20080807
  10. ASCORBIC ACID [Concomitant]

REACTIONS (6)
  - C-REACTIVE PROTEIN INCREASED [None]
  - EPIDIDYMAL DISORDER [None]
  - EPIDIDYMITIS [None]
  - GROIN PAIN [None]
  - ORCHITIS [None]
  - ULTRASOUND SCAN ABNORMAL [None]
